FAERS Safety Report 10396076 (Version 1)
Quarter: 2014Q3

REPORT INFORMATION
  Report Type: Spontaneous
  Country: US (occurrence: US)
  Receive Date: 20140820
  Receipt Date: 20140820
  Transmission Date: 20150326
  Serious: No
  Sender: FDA-Public Use
  Company Number: US-BAYER-2014-123559

PATIENT

DRUGS (2)
  1. STIVARGA [Suspect]
     Active Substance: REGORAFENIB
     Dosage: 160MG PER DAY
  2. STIVARGA [Suspect]
     Active Substance: REGORAFENIB
     Dosage: 120MG PER DAY

REACTIONS (1)
  - Fatigue [None]
